FAERS Safety Report 7138604-8 (Version None)
Quarter: 2010Q4

REPORT INFORMATION
  Report Type: 
  Country: None (occurrence: None)
  Receive Date: 20101108
  Receipt Date: 20101026
  Transmission Date: 20110411
  Serious: Yes (Other)
  Sender: FDA-Public Use
  Company Number: CA-145087

PATIENT
  Sex: Female

DRUGS (3)
  1. WINRHO [Suspect]
     Indication: PROPHYLAXIS AGAINST RH ISOIMMUNISATION
     Dosage: (INTRAVENOUS)
     Route: 042
     Dates: start: 19860101, end: 19860101
  2. WINRHO [Suspect]
     Indication: PROPHYLAXIS AGAINST RH ISOIMMUNISATION
     Dosage: (INTRAVENOUS)
     Route: 042
     Dates: start: 19880101, end: 19880101
  3. WINRHO [Suspect]

REACTIONS (2)
  - HEPATITIS C ANTIBODY POSITIVE [None]
  - NON-HODGKIN'S LYMPHOMA [None]
